FAERS Safety Report 5418579-X (Version None)
Quarter: 2007Q3

REPORT INFORMATION
  Report Type: 
  Country: None (occurrence: None)
  Receive Date: 20070817
  Receipt Date: 20070813
  Transmission Date: 20080115
  Serious: Yes (Death)
  Sender: FDA-Public Use
  Company Number: US-PFIZER INC-2007066708

PATIENT
  Sex: Male

DRUGS (2)
  1. SU-011,248 [Suspect]
     Indication: MESOTHELIOMA
     Route: 048
     Dates: start: 20070607, end: 20070713
  2. GEMCITABINE HCL [Suspect]
     Indication: MESOTHELIOMA
     Dosage: DAILY DOSE:1650MG-TEXT:1000MG/M2-FREQ:FREQUENCY WEEKLY; INTERVAL EVERY 2 OF 3
     Route: 042
     Dates: start: 20070606, end: 20070705

REACTIONS (1)
  - DEATH [None]
